FAERS Safety Report 7815709-7 (Version None)
Quarter: 2011Q4

REPORT INFORMATION
  Report Type: 
  Country: None (occurrence: None)
  Receive Date: 20111014
  Receipt Date: 20111006
  Transmission Date: 20120403
  Serious: Yes (Life-Threatening, Hospitalization, Other)
  Sender: FDA-Public Use
  Company Number: DE-EISAI INC-E7389-01627-SPO-DE

PATIENT
  Sex: Female

DRUGS (1)
  1. HALAVEN [Suspect]
     Dosage: UNKNOWN
     Route: 041

REACTIONS (3)
  - RHABDOMYOLYSIS [None]
  - RENAL INJURY [None]
  - RENAL FAILURE ACUTE [None]
